FAERS Safety Report 9549974 (Version 1)
Quarter: 2013Q3

REPORT INFORMATION
  Report Type: Spontaneous
  Country: GB (occurrence: GB)
  Receive Date: 20130924
  Receipt Date: 20130924
  Transmission Date: 20140515
  Serious: Yes (Other)
  Sender: FDA-Public Use
  Company Number: PHHY2013GB104960

PATIENT
  Age: 23 Year
  Sex: Female

DRUGS (2)
  1. CO-CODAMOL [Suspect]
     Indication: TOOTHACHE
     Dosage: UNK UKN, UNK
     Dates: start: 20130910, end: 20130910
  2. FEMINAX                            /00244401/ [Concomitant]

REACTIONS (3)
  - Abdominal pain upper [Not Recovered/Not Resolved]
  - Dizziness [Not Recovered/Not Resolved]
  - Drug administration error [Unknown]
